FAERS Safety Report 6348868-6 (Version None)
Quarter: 2009Q3

REPORT INFORMATION
  Report Type: 
  Country: None (occurrence: None)
  Receive Date: 20090911
  Receipt Date: 20090909
  Transmission Date: 20100115
  Serious: Yes (Hospitalization)
  Sender: FDA-Public Use
  Company Number: JP-BAYER-200910989BYL

PATIENT
  Age: 61 Year
  Sex: Female
  Weight: 42 kg

DRUGS (34)
  1. FLUDARA [Suspect]
     Indication: CORD BLOOD TRANSPLANT THERAPY
     Route: 042
     Dates: start: 20080910, end: 20080915
  2. CYCLOPHOSPHAMIDE [Suspect]
     Indication: CORD BLOOD TRANSPLANT THERAPY
     Route: 042
     Dates: start: 20080912, end: 20080912
  3. NEORAL [Suspect]
     Indication: PROPHYLAXIS AGAINST GRAFT VERSUS HOST DISEASE
     Dosage: AS USED: 270-20 MG
     Route: 048
     Dates: start: 20080916, end: 20081113
  4. ITRIZOLE [Suspect]
     Indication: INFECTION PROPHYLAXIS
     Route: 048
     Dates: start: 20080916
  5. DIFLUCAN [Concomitant]
     Indication: INFECTION PROPHYLAXIS
     Route: 048
     Dates: start: 20080901, end: 20080912
  6. NEUQUINON [Concomitant]
     Route: 048
     Dates: start: 20080903
  7. URSO 250 [Concomitant]
     Route: 048
     Dates: start: 20080903
  8. GRANISETRON HCL [Concomitant]
     Route: 042
     Dates: start: 20080909, end: 20080910
  9. BAKTAR [Concomitant]
     Indication: INFECTION PROPHYLAXIS
     Route: 048
     Dates: start: 20080909, end: 20080916
  10. HEPARIN SODIUM [Concomitant]
     Route: 042
     Dates: start: 20080909, end: 20081104
  11. HUMULIN R [Concomitant]
     Route: 058
     Dates: start: 20080909
  12. NASEA [Concomitant]
     Route: 042
     Dates: start: 20080910, end: 20080918
  13. UROMITEXAN [Concomitant]
     Route: 042
     Dates: start: 20080912, end: 20080912
  14. VICCLOX [Concomitant]
     Indication: INFECTION PROPHYLAXIS
     Route: 041
     Dates: start: 20080913, end: 20081002
  15. MAXIPIME [Concomitant]
     Indication: INFECTION PROPHYLAXIS
     Route: 042
     Dates: start: 20080913, end: 20080925
  16. PRODIF [Concomitant]
     Route: 065
     Dates: start: 20080914, end: 20080916
  17. SOLDACTONE [Concomitant]
     Route: 042
     Dates: start: 20080914, end: 20081103
  18. LEVOFLOXACIN [Concomitant]
     Indication: INFECTION PROPHYLAXIS
     Route: 048
     Dates: start: 20080915, end: 20081023
  19. LEUKOPROL [Concomitant]
     Dosage: AS USED: 8 MIU
     Route: 042
     Dates: start: 20080918, end: 20081002
  20. IMMUNE GLOBULIN INTRAVENOUS (HUMAN) [Concomitant]
     Indication: INFECTION PROPHYLAXIS
     Dosage: AS USED: 5 G
     Route: 042
     Dates: start: 20080916, end: 20080918
  21. CELLCEPT [Concomitant]
     Indication: PROPHYLAXIS AGAINST GRAFT VERSUS HOST DISEASE
     Dosage: AS USED: 1000 MG
     Route: 048
     Dates: start: 20080918, end: 20081015
  22. LASIX [Concomitant]
     Indication: RENAL IMPAIRMENT
     Dosage: AS USED: 20-40 MG
     Route: 042
     Dates: start: 20080919, end: 20081103
  23. ALINAMIN F [Concomitant]
     Dosage: AS USED: 50 MG
     Route: 042
     Dates: start: 20080923, end: 20081104
  24. PANTOSIN [Concomitant]
     Dosage: AS USED: 200 MG
     Route: 042
     Dates: start: 20080923, end: 20081104
  25. GASTER [Concomitant]
     Dosage: AS USED: 20 MG
     Route: 042
     Dates: start: 20080916, end: 20081104
  26. MEROPEN [Concomitant]
     Indication: INFECTION PROPHYLAXIS
     Dosage: AS USED: 1 G
     Route: 042
     Dates: start: 20080926, end: 20081008
  27. SOLU-MEDROL [Concomitant]
     Dosage: AS USED: 80 MG
     Route: 042
     Dates: start: 20080917, end: 20080917
  28. OMEGACIN [Concomitant]
     Dosage: AS USED: 0.6 G
     Route: 042
     Dates: start: 20081009, end: 20081014
  29. ZOVIRAX [Concomitant]
     Indication: INFECTION PROPHYLAXIS
     Dosage: AS USED: 400 MG
     Route: 048
     Dates: start: 20081023, end: 20081111
  30. AMARYL [Concomitant]
     Indication: DIABETES MELLITUS
     Dosage: AS USED: 1 MG
     Route: 048
     Dates: start: 20081113
  31. BEZATOL SR [Concomitant]
     Dosage: AS USED: 400 MG
     Route: 048
     Dates: start: 20081112
  32. CONCENTRATED RED CELLS [Concomitant]
     Indication: PACKED RED BLOOD CELL TRANSFUSION
     Route: 042
     Dates: start: 20080924, end: 20081011
  33. PLATELETS [Concomitant]
     Indication: PLATELET TRANSFUSION
     Route: 042
     Dates: start: 20080911, end: 20081017
  34. FRESH FROZEN PLASMA [Concomitant]
     Indication: BLOOD PRODUCT TRANSFUSION
     Route: 042
     Dates: start: 20080927, end: 20080927

REACTIONS (8)
  - CYTOMEGALOVIRUS VIRAEMIA [None]
  - FUNGUS SEROLOGY TEST POSITIVE [None]
  - GASTROINTESTINAL DISORDER [None]
  - HEPATIC FUNCTION ABNORMAL [None]
  - HYPERBILIRUBINAEMIA [None]
  - HYPERURICAEMIA [None]
  - HYPOMAGNESAEMIA [None]
  - RENAL IMPAIRMENT [None]
